FAERS Safety Report 7027737-2 (Version None)
Quarter: 2010Q4

REPORT INFORMATION
  Report Type: 
  Country: None (occurrence: None)
  Receive Date: 20101004
  Receipt Date: 20100924
  Transmission Date: 20110411
  Serious: Yes (Other)
  Sender: FDA-Public Use
  Company Number: BE-AMGEN-QUU428229

PATIENT
  Sex: Female

DRUGS (6)
  1. NPLATE [Suspect]
     Indication: IDIOPATHIC THROMBOCYTOPENIC PURPURA
     Dates: start: 20070625
  2. OMEPRAZOLE [Concomitant]
  3. AMLODIPINE [Concomitant]
  4. TRITACE [Concomitant]
  5. ZOCOR [Concomitant]
  6. CARDIOASPIRIN [Concomitant]

REACTIONS (3)
  - PLATELET COUNT DECREASED [None]
  - PLATELET COUNT INCREASED [None]
  - THERAPEUTIC RESPONSE DECREASED [None]
